FAERS Safety Report 6804895-3 (Version None)
Quarter: 2010Q2

REPORT INFORMATION
  Report Type: 
  Country: None (occurrence: None)
  Receive Date: 20100628
  Receipt Date: 20070716
  Transmission Date: 20101027
  Serious: No
  Sender: FDA-Public Use
  Company Number: US-PFIZER INC-2007048920

PATIENT
  Sex: Male

DRUGS (4)
  1. CADUET [Suspect]
     Indication: BLOOD CHOLESTEROL INCREASED
     Dosage: 5/10MG
     Route: 048
     Dates: start: 20070606
  2. CADUET [Suspect]
     Indication: HYPERTENSION
  3. ALL OTHER THERAPEUTIC PRODUCTS [Concomitant]
  4. COMBIVENT [Concomitant]
     Route: 055

REACTIONS (1)
  - CONSTIPATION [None]
